FAERS Safety Report 4350999-7 (Version None)
Quarter: 2004Q2

REPORT INFORMATION
  Report Type: 
  Country: None (occurrence: None)
  Receive Date: 20040428
  Receipt Date: 20040415
  Transmission Date: 20050107
  Serious: Yes (Death, Hospitalization, Other)
  Sender: FDA-Public Use
  Company Number: 2004005884

PATIENT
  Age: 55 Year
  Sex: Female

DRUGS (13)
  1. DILANTIN INJ [Suspect]
     Indication: CONVULSION
     Dosage: 100 MG (Q8H), INTRAVENOUS
     Route: 042
     Dates: start: 20011227, end: 20011229
  2. QUINAPRIL HYDROCHLORIDE (QUINAPRIL) [Suspect]
     Indication: HYPERTENSION
     Dosage: 20 MG (BID), ORAL
     Route: 048
     Dates: start: 20011231, end: 20020128
  3. CEREBYX [Suspect]
     Indication: CONVULSION
     Dates: start: 20020202
  4. CLONIDINE HCL [Concomitant]
  5. IBUPROFEN [Concomitant]
  6. LORAZEPAM [Concomitant]
  7. NIFEDIPINE [Concomitant]
  8. METOPROLOL TARTRATE [Concomitant]
  9. FAMOTIDINE [Concomitant]
  10. GABAPENTIN [Concomitant]
  11. PREDNISONE [Concomitant]
  12. CLOTRIMAZOLE [Concomitant]
  13. NYSTATIN [Concomitant]

REACTIONS (88)
  - ABDOMINAL PAIN [None]
  - AGITATION [None]
  - AMMONIA INCREASED [None]
  - ANXIETY [None]
  - AORTIC ATHEROSCLEROSIS [None]
  - APHASIA [None]
  - ASTHENIA [None]
  - ATHEROSCLEROSIS [None]
  - BACK PAIN [None]
  - BLOOD CALCIUM DECREASED [None]
  - BLOOD CREATININE INCREASED [None]
  - BLOOD GLUCOSE INCREASED [None]
  - BLOOD POTASSIUM INCREASED [None]
  - BLOOD SODIUM DECREASED [None]
  - CARDIAC ARREST [None]
  - CARDIOVASCULAR DISORDER [None]
  - CELLULITIS [None]
  - COGNITIVE DETERIORATION [None]
  - CONVULSION [None]
  - CORONARY ARTERY STENOSIS [None]
  - CULTURE WOUND POSITIVE [None]
  - DERMATITIS EXFOLIATIVE [None]
  - DIALYSIS [None]
  - DIFFICULTY IN WALKING [None]
  - DIPLOPIA [None]
  - DISORIENTATION [None]
  - DISSEMINATED INTRAVASCULAR COAGULATION [None]
  - DIZZINESS [None]
  - DRUG ERUPTION [None]
  - DRUG HYPERSENSITIVITY [None]
  - DRUG LEVEL ABOVE THERAPEUTIC [None]
  - EMPHYSEMA [None]
  - ENCEPHALOPATHY [None]
  - ENTEROCOCCAL INFECTION [None]
  - FALL [None]
  - FATIGUE [None]
  - FEELING COLD [None]
  - HAEMORRHAGE [None]
  - HEMIPARESIS [None]
  - HEMIPLEGIA [None]
  - HEPATIC FAILURE [None]
  - HEPATIC NECROSIS [None]
  - HEPATORENAL FAILURE [None]
  - HEPATORENAL SYNDROME [None]
  - HYDROCEPHALUS [None]
  - HYPERTENSION [None]
  - HYPOTENSION [None]
  - INFUSION SITE INFECTION [None]
  - INFUSION SITE PAIN [None]
  - INFUSION SITE REACTION [None]
  - INFUSION SITE SWELLING [None]
  - ISCHAEMIA [None]
  - JAUNDICE [None]
  - LEUKOPENIA [None]
  - LYMPHOPENIA [None]
  - MEMORY IMPAIRMENT [None]
  - MULTI-ORGAN FAILURE [None]
  - NAUSEA [None]
  - NERVOUS SYSTEM DISORDER [None]
  - OEDEMA [None]
  - PAIN [None]
  - PLEURAL EFFUSION [None]
  - POST PROCEDURAL COMPLICATION [None]
  - POST PROCEDURAL PAIN [None]
  - PULMONARY ARTERY DILATATION [None]
  - PULMONARY CONGESTION [None]
  - PULMONARY OEDEMA [None]
  - RASH [None]
  - RASH ERYTHEMATOUS [None]
  - RASH MACULO-PAPULAR [None]
  - RASH PRURITIC [None]
  - RED BLOOD CELL COUNT DECREASED [None]
  - RENAL FAILURE [None]
  - RENAL TUBULAR NECROSIS [None]
  - RESPIRATORY FAILURE [None]
  - RESTLESSNESS [None]
  - SEPSIS [None]
  - SERUM FERRITIN INCREASED [None]
  - SKIN DISORDER [None]
  - SKIN LACERATION [None]
  - SOMNOLENCE [None]
  - STAPHYLOCOCCAL INFECTION [None]
  - TACHYCARDIA [None]
  - URINARY TRACT INFECTION [None]
  - VENTRICULAR TACHYCARDIA [None]
  - VOMITING [None]
  - WHITE BLOOD CELL COUNT DECREASED [None]
  - WHITE BLOOD CELL COUNT INCREASED [None]
